FAERS Safety Report 20925954 (Version 2)
Quarter: 2022Q3

REPORT INFORMATION
  Report Type: Report from Study
  Country: US (occurrence: US)
  Receive Date: 20220607
  Receipt Date: 20220705
  Transmission Date: 20221027
  Serious: Yes (Hospitalization, Other)
  Sender: FDA-Public Use
  Company Number: US-ABBVIE-22K-163-4421536-00

PATIENT
  Sex: Female

DRUGS (2)
  1. SKYRIZI [Suspect]
     Active Substance: RISANKIZUMAB-RZAA
     Indication: Psoriasis
     Route: 058
  2. SKYRIZI [Suspect]
     Active Substance: RISANKIZUMAB-RZAA
     Indication: Psoriatic arthropathy

REACTIONS (9)
  - Asthma [Unknown]
  - Cholecystectomy [Unknown]
  - Muscle spasms [Unknown]
  - Hyperhidrosis [Unknown]
  - Feeling hot [Unknown]
  - COVID-19 [Unknown]
  - Blood pressure increased [Unknown]
  - Psoriasis [Unknown]
  - Weight increased [Unknown]

NARRATIVE: CASE EVENT DATE: 20180101
